FAERS Safety Report 13395332 (Version 1)
Quarter: 2017Q2

REPORT INFORMATION
  Report Type: Spontaneous
  Country: US (occurrence: US)
  Receive Date: 20170403
  Receipt Date: 20170403
  Transmission Date: 20170830
  Serious: No
  Sender: FDA-Public Use
  Company Number: US-PFIZER INC-2017137473

PATIENT
  Age: 69 Year
  Sex: Female

DRUGS (16)
  1. DILAUDID [Suspect]
     Active Substance: HYDROMORPHONE HYDROCHLORIDE
     Dosage: UNK
  2. VICODIN [Suspect]
     Active Substance: ACETAMINOPHEN\HYDROCODONE BITARTRATE
     Dosage: UNK
  3. KLOR-CON [Suspect]
     Active Substance: POTASSIUM CHLORIDE
     Dosage: UNK
  4. AZULFIDINE [Suspect]
     Active Substance: SULFASALAZINE
     Dosage: UNK
  5. LODINE [Suspect]
     Active Substance: ETODOLAC
     Dosage: UNK
  6. MORPHINE SULFATE. [Suspect]
     Active Substance: MORPHINE SULFATE
     Dosage: UNK
  7. ACIPHEX [Suspect]
     Active Substance: RABEPRAZOLE SODIUM
     Dosage: UNK
  8. ZITHROMAX [Suspect]
     Active Substance: AZITHROMYCIN DIHYDRATE
     Dosage: UNK
  9. TRAZODONE [Suspect]
     Active Substance: TRAZODONE HYDROCHLORIDE
     Dosage: UNK
  10. ACTONEL [Suspect]
     Active Substance: RISEDRONATE SODIUM
     Dosage: UNK
  11. PLAVIX [Suspect]
     Active Substance: CLOPIDOGREL BISULFATE
     Dosage: UNK
  12. ULTRAM [Suspect]
     Active Substance: TRAMADOL HYDROCHLORIDE
     Dosage: UNK
  13. PERCOCET [Suspect]
     Active Substance: ACETAMINOPHEN\OXYCODONE HYDROCHLORIDE
     Dosage: UNK
  14. DOMPERIDONE [Suspect]
     Active Substance: DOMPERIDONE
     Dosage: UNK
  15. SALICYLATE SODIUM [Suspect]
     Active Substance: SODIUM SALICYLATE
     Dosage: UNK
  16. DISALCID [Suspect]
     Active Substance: SALSALATE
     Dosage: UNK

REACTIONS (1)
  - Drug hypersensitivity [Unknown]
